FAERS Safety Report 4924737-0 (Version None)
Quarter: 2006Q1

REPORT INFORMATION
  Report Type: 
  Country: None (occurrence: None)
  Receive Date: 20060227
  Receipt Date: 20060221
  Transmission Date: 20060701
  Serious: Yes (Hospitalization)
  Sender: FDA-Public Use
  Company Number: NL-MERCK-0602NLD00044

PATIENT
  Age: 72 Year
  Sex: Male
  Weight: 89 kg

DRUGS (8)
  1. ZETIA [Suspect]
     Indication: CORONARY ARTERY SURGERY
     Route: 048
     Dates: start: 20050623, end: 20060109
  2. ROSUVASTATIN CALCIUM [Suspect]
     Indication: CORONARY ARTERY SURGERY
     Route: 048
     Dates: start: 20050901, end: 20060109
  3. NITROFURANTOIN [Suspect]
     Indication: CORONARY ARTERY SURGERY
     Route: 048
     Dates: start: 20050412, end: 20060109
  4. GLIMEPIRIDE [Concomitant]
     Route: 048
     Dates: start: 20011005
  5. ROSIGLITAZONE MALEATE [Concomitant]
     Route: 048
     Dates: start: 20030722
  6. ASPIRIN CALCIUM [Concomitant]
     Route: 048
  7. HYDROXYCHLOROQUINE SULFATE [Concomitant]
     Route: 048
  8. METOPROLOL TARTRATE [Concomitant]
     Route: 048

REACTIONS (3)
  - BLOOD POTASSIUM DECREASED [None]
  - HEPATITIS CHOLESTATIC [None]
  - WEIGHT DECREASED [None]
